FAERS Safety Report 20217471 (Version 2)
Quarter: 2022Q1

REPORT INFORMATION
  Report Type: Report from Study
  Country: US (occurrence: US)
  Receive Date: 20211222
  Receipt Date: 20220331
  Transmission Date: 20220423
  Serious: Yes (Hospitalization)
  Sender: FDA-Public Use
  Company Number: US-JNJFOC-20211235088

PATIENT
  Age: 27 Year
  Sex: Female

DRUGS (1)
  1. SPRAVATO [Suspect]
     Active Substance: ESKETAMINE
     Indication: Depression
     Dosage: 2 DOSES
     Dates: start: 20211104, end: 20211108

REACTIONS (1)
  - Eating disorder [Unknown]

NARRATIVE: CASE EVENT DATE: 20211214
